FAERS Safety Report 7330993 (Version 2)
Quarter: 2012Q4

REPORT INFORMATION
  Report Type: 
  Country: ES (occurrence: ES)
  Receive Date: 20100325
  Receipt Date: 20121026
  Transmission Date: 20130627
  Serious: Yes (Hospitalization)
  Sender: FDA-Public Use
  Company Number: PHHY2010ES15925

PATIENT
  Age: 27 Year
  Sex: Female

DRUGS (4)
  1. CARBAMAZEPINE [Suspect]
     Indication: PERSONALITY DISORDER
     Dosage: 400 mg/day
  2. VENLAFAXINE [Concomitant]
     Indication: PERSONALITY DISORDER
     Dosage: 75 mg/day
  3. LORAZEPAM [Concomitant]
     Indication: PERSONALITY DISORDER
     Dosage: 5 mg/day
  4. CLORAZEPATE DIPOTASSIUM [Concomitant]
     Indication: PERSONALITY DISORDER
     Dosage: 15 mg/day

REACTIONS (5)
  - Suicide attempt [Unknown]
  - Toxicity to various agents [Unknown]
  - Mydriasis [Unknown]
  - Disorientation [Unknown]
  - Somnolence [Unknown]
